FAERS Safety Report 7916823-8 (Version None)
Quarter: 2011Q4

REPORT INFORMATION
  Report Type: 
  Country: None (occurrence: None)
  Receive Date: 20111114
  Receipt Date: 20111031
  Transmission Date: 20120403
  Serious: Yes (Other)
  Sender: FDA-Public Use
  Company Number: TPA2011A03277

PATIENT
  Age: 43 Year
  Sex: Female

DRUGS (6)
  1. URALYT (MAGNESIUM PROSPHATE, SOLIDAGO VIRGAUREA, ARNICA MONTANA EXTRAC [Concomitant]
  2. PREDNISOLONE [Concomitant]
  3. PROBENECID [Concomitant]
  4. LANSOPRAZOLE [Concomitant]
  5. BARACLUDE (OTHER ANTIVIRALS) [Concomitant]
  6. FEBURIC (FEBUXOSTAT) [Suspect]
     Indication: GOUT
     Dosage: 10 MG (10 MG, 1 IN 1 D), PER ORAL
     Route: 048
     Dates: start: 20110514, end: 20110521

REACTIONS (5)
  - MALAISE [None]
  - ASPARTATE AMINOTRANSFERASE INCREASED [None]
  - GAMMA-GLUTAMYLTRANSFERASE INCREASED [None]
  - ALANINE AMINOTRANSFERASE INCREASED [None]
  - LIVER DISORDER [None]
